FAERS Safety Report 6463748-3 (Version None)
Quarter: 2009Q4

REPORT INFORMATION
  Report Type: 
  Country: None (occurrence: None)
  Receive Date: 20091201
  Receipt Date: 20091125
  Transmission Date: 20100525
  Serious: Yes (Hospitalization)
  Sender: FDA-Public Use
  Company Number: US-JNJFOC-20091107349

PATIENT
  Age: 30 Year
  Sex: Female

DRUGS (3)
  1. AMRIX [Suspect]
     Route: 048
  2. AMRIX [Suspect]
     Indication: SCIATICA
     Route: 048
  3. FLURBIPROFEN [Concomitant]
     Indication: SCIATICA

REACTIONS (3)
  - HYPOGLYCAEMIA [None]
  - INTENTIONAL OVERDOSE [None]
  - SYNCOPE [None]
